FAERS Safety Report 8730287 (Version 4)
Quarter: 2012Q4

REPORT INFORMATION
  Report Type: Report from Study
  Country: US (occurrence: US)
  Receive Date: 20120817
  Receipt Date: 20121205
  Transmission Date: 20130627
  Serious: Yes (Other)
  Sender: FDA-Public Use
  Company Number: US-ABBOTT-12P-163-0967196-00

PATIENT
  Age: 64 Year
  Sex: Male

DRUGS (13)
  1. HUMIRA 40 MG/0.8 ML PEN [Suspect]
     Indication: CROHN^S DISEASE
     Dates: start: 20120615
  2. UNKNOWN BLOOD PRESSURE MEDICATIONS [Concomitant]
     Indication: BLOOD PRESSURE
  3. PENTASA [Concomitant]
     Indication: CROHN^S DISEASE
     Dosage: 3 tablets twice a day
  4. CARVEDILOL [Concomitant]
     Indication: HYPERTENSION
  5. FUROSEMIDE [Concomitant]
     Indication: OEDEMA PERIPHERAL
  6. DIGOXIN [Concomitant]
     Indication: ATRIAL FIBRILLATION
     Dosage: Daily
  7. WARFARIN [Concomitant]
     Indication: ATRIAL FIBRILLATION
     Dosage: 5mg/6mg rotating
  8. NEXIUM [Concomitant]
     Indication: GASTROOESOPHAGEAL REFLUX DISEASE
     Dosage: Daily
  9. LORAZEPAM [Concomitant]
     Indication: RELAXATION THERAPY
  10. FERROUS SULFATE [Concomitant]
     Indication: ANAEMIA
     Dosage: Daily
  11. VITAMIN D3 [Concomitant]
     Indication: VITAMIN SUPPLEMENTATION
  12. FISH OIL [Concomitant]
     Indication: SUPPLEMENTATION THERAPY
  13. VITAMIN B12 [Concomitant]
     Indication: PRODUCT USED FOR UNKNOWN INDICATION
     Route: 050

REACTIONS (5)
  - Ocular vascular disorder [Not Recovered/Not Resolved]
  - Diplopia [Not Recovered/Not Resolved]
  - IIIrd nerve disorder [Not Recovered/Not Resolved]
  - Vision blurred [Unknown]
  - Diabetes mellitus [Not Recovered/Not Resolved]
